FAERS Safety Report 14142473 (Version 2)
Quarter: 2017Q4

REPORT INFORMATION
  Report Type: Report from Study
  Country: IT (occurrence: IT)
  Receive Date: 20171030
  Receipt Date: 20171108
  Transmission Date: 20180321
  Serious: Yes (Other)
  Sender: FDA-Public Use
  Company Number: IT-ALLERGAN-1761111US

PATIENT
  Age: 77 Year
  Sex: Male

DRUGS (2)
  1. CLOZAPINE. [Interacting]
     Active Substance: CLOZAPINE
     Indication: PRODUCT USED FOR UNKNOWN INDICATION
     Route: 048
     Dates: start: 20161222
  2. CITALOPRAM HYDROBROMIDE UNK [Suspect]
     Active Substance: CITALOPRAM HYDROBROMIDE
     Indication: PRODUCT USED FOR UNKNOWN INDICATION
     Dosage: 20 MG, QD
     Route: 048
     Dates: end: 20161222

REACTIONS (4)
  - Malaise [Unknown]
  - Sopor [Unknown]
  - Asthenia [Unknown]
  - Drug interaction [Unknown]

NARRATIVE: CASE EVENT DATE: 20161226
